FAERS Safety Report 13731797 (Version 3)
Quarter: 2017Q3

REPORT INFORMATION
  Report Type: Spontaneous
  Country: US (occurrence: US)
  Receive Date: 20170707
  Receipt Date: 20170726
  Transmission Date: 20171127
  Serious: No
  Sender: FDA-Public Use
  Company Number: US-PFIZER INC-2017291134

PATIENT
  Age: 88 Year
  Sex: Female

DRUGS (2)
  1. IBRANCE [Suspect]
     Active Substance: PALBOCICLIB
     Indication: BREAST CANCER STAGE IV
     Dosage: 125 MG, CYCLIC, (PO QD X 21 DAYS THEN OFF 7 DAYS)
     Route: 048
     Dates: start: 20161220
  2. LETROZOLE. [Concomitant]
     Active Substance: LETROZOLE
     Dosage: UNK UNK, DAILY(1-2.5 MG TABLET DAILY)
     Dates: start: 201612

REACTIONS (6)
  - Skin exfoliation [Unknown]
  - Nail disorder [Not Recovered/Not Resolved]
  - Rash macular [Unknown]
  - Onychoclasis [Not Recovered/Not Resolved]
  - Pruritus [Unknown]
  - Somnolence [Unknown]

NARRATIVE: CASE EVENT DATE: 201706
